FAERS Safety Report 15156277 (Version 2)
Quarter: 2018Q3

REPORT INFORMATION
  Report Type: Spontaneous
  Country: US (occurrence: US)
  Receive Date: 20180717
  Receipt Date: 20180913
  Transmission Date: 20181010
  Serious: Yes (Hospitalization, Other)
  Sender: FDA-Public Use
  Company Number: US-SHIRE-US201825515

PATIENT
  Age: 36 Year
  Sex: Male
  Weight: 68.27 kg

DRUGS (23)
  1. VINCRISTINE [Suspect]
     Active Substance: VINCRISTINE
     Indication: ACUTE LYMPHOCYTIC LEUKAEMIA RECURRENT
     Dosage: 0.03 MG/KG, (ON DAYS 09,15,22,29)
     Route: 042
     Dates: start: 20180516, end: 20180529
  2. CYTARABINE. [Concomitant]
     Active Substance: CYTARABINE
     Indication: ACUTE LYMPHOCYTIC LEUKAEMIA
  3. AZACITIDINE. [Concomitant]
     Active Substance: AZACITIDINE
     Indication: ACUTE LYMPHOCYTIC LEUKAEMIA
  4. MYLOTARG [Concomitant]
     Active Substance: GEMTUZUMAB OZOGAMICIN
     Indication: ACUTE LYMPHOCYTIC LEUKAEMIA
  5. BACTRIM [Concomitant]
     Active Substance: SULFAMETHOXAZOLE\TRIMETHOPRIM
     Indication: ANTIBIOTIC PROPHYLAXIS
  6. COLCHICINE. [Concomitant]
     Active Substance: COLCHICINE
     Indication: GOUT
  7. NAVITOCLAX [Suspect]
     Active Substance: NAVITOCLAX
     Dosage: 25 MG, 1X/DAY:QD
     Route: 048
     Dates: start: 20180608, end: 20180608
  8. CARFILZOMIB [Concomitant]
     Active Substance: CARFILZOMIB
     Indication: ACUTE LYMPHOCYTIC LEUKAEMIA
  9. ALLOPURINOL. [Concomitant]
     Active Substance: ALLOPURINOL
     Indication: PROPHYLAXIS
  10. VENETOCLAX. [Suspect]
     Active Substance: VENETOCLAX
     Dosage: 400 MG, 1X/DAY:QD
     Route: 048
     Dates: start: 20180608, end: 20180608
  11. DEXAMETHASONE. [Suspect]
     Active Substance: DEXAMETHASONE
     Indication: ACUTE LYMPHOCYTIC LEUKAEMIA RECURRENT
     Dosage: 20 MG, (ON DAYS 9?13 AND DAYS 22?26)
     Route: 048
     Dates: start: 20180516
  12. CLADRIBINE. [Concomitant]
     Active Substance: CLADRIBINE
     Indication: ACUTE LYMPHOCYTIC LEUKAEMIA
  13. VENETOCLAX. [Suspect]
     Active Substance: VENETOCLAX
     Indication: ACUTE LYMPHOCYTIC LEUKAEMIA RECURRENT
     Dosage: 200 MG, 1X/DAY:QD
     Route: 048
     Dates: start: 20180508, end: 20180508
  14. NAVITOCLAX [Suspect]
     Active Substance: NAVITOCLAX
     Indication: ACUTE LYMPHOCYTIC LEUKAEMIA RECURRENT
     Dosage: 25 MG, 1X/DAY:QD
     Route: 048
     Dates: start: 20180510, end: 20180603
  15. NELARABINE [Concomitant]
     Active Substance: NELARABINE
     Indication: ACUTE LYMPHOCYTIC LEUKAEMIA
  16. ETOPOSIDE. [Concomitant]
     Active Substance: ETOPOSIDE
     Indication: ACUTE LYMPHOCYTIC LEUKAEMIA
  17. PEGASPARGASE [Suspect]
     Active Substance: PEGASPARGASE
     Indication: ACUTE LYMPHOCYTIC LEUKAEMIA RECURRENT
     Dosage: 48 ML, ON DAY 09 AND DAY 22
     Route: 042
     Dates: end: 20180602
  18. KYTRIL [Concomitant]
     Active Substance: GRANISETRON HYDROCHLORIDE
     Indication: NAUSEA
  19. FILGRASTIM [Concomitant]
     Active Substance: FILGRASTIM
     Indication: ACUTE LYMPHOCYTIC LEUKAEMIA
  20. VENETOCLAX. [Suspect]
     Active Substance: VENETOCLAX
     Dosage: 400 MG, 1X/DAY:QD
     Route: 048
     Dates: start: 20180509, end: 20180603
  21. NECTAR [Concomitant]
     Indication: ACUTE LYMPHOCYTIC LEUKAEMIA
  22. CYTARABINE W/METHOTREXATE [Concomitant]
     Active Substance: CYTARABINE\METHOTREXATE
     Indication: ACUTE LYMPHOCYTIC LEUKAEMIA
  23. CYCLOPHOSPHAMIDE. [Concomitant]
     Active Substance: CYCLOPHOSPHAMIDE
     Indication: ACUTE LYMPHOCYTIC LEUKAEMIA

REACTIONS (1)
  - Febrile neutropenia [Recovered/Resolved]

NARRATIVE: CASE EVENT DATE: 20180604
